FAERS Safety Report 8119185 (Version 2)
Quarter: 2013Q3

REPORT INFORMATION
  Report Type: Spontaneous
  Country: GB (occurrence: GB)
  Receive Date: 20110902
  Receipt Date: 20130705
  Transmission Date: 20140515
  Serious: Yes (Death, Other)
  Sender: FDA-Public Use
  Company Number: GB-GLAXOSMITHKLINE-B0744209A

PATIENT
  Age: 8 Year
  Sex: Female

DRUGS (3)
  1. BUSULFAN [Suspect]
     Indication: THALASSAEMIA BETA
     Dosage: 14MGK PER DAY
     Route: 065
  2. CYCLOPHOSPHAMIDE [Suspect]
     Indication: BONE MARROW CONDITIONING REGIMEN
     Route: 065
  3. METHOTREXATE [Suspect]
     Indication: BONE MARROW CONDITIONING REGIMEN
     Route: 065

REACTIONS (8)
  - Venoocclusive disease [Fatal]
  - Mucosal inflammation [Fatal]
  - Pulmonary haemorrhage [Unknown]
  - Pneumonitis [Unknown]
  - Pulmonary hypertension [Unknown]
  - Respiratory failure [Unknown]
  - Idiopathic pneumonia syndrome [Unknown]
  - Sepsis [Unknown]
